FAERS Safety Report 13062659 (Version 1)
Quarter: 2016Q4

REPORT INFORMATION
  Report Type: Report from Study
  Country: FR (occurrence: FR)
  Receive Date: 20161226
  Receipt Date: 20161226
  Transmission Date: 20170207
  Serious: Yes (Other)
  Sender: FDA-Public Use
  Company Number: FR-BEH-2016076467

PATIENT

DRUGS (1)
  1. PRIVIGEN [Suspect]
     Active Substance: HUMAN IMMUNOGLOBULIN G
     Indication: PARANEOPLASTIC NEUROLOGICAL SYNDROME
     Dosage: 2000 MG/KG, 3 MONTHLY
     Route: 042

REACTIONS (1)
  - Skin toxicity [Unknown]
